FAERS Safety Report 7681105-9 (Version None)
Quarter: 2011Q3

REPORT INFORMATION
  Report Type: 
  Country: None (occurrence: None)
  Receive Date: 20110804
  Receipt Date: 20110720
  Transmission Date: 20111222
  Serious: Yes (Hospitalization, Disabling)
  Sender: FDA-Public Use
  Company Number: DSA_45276_2011

PATIENT
  Sex: Male

DRUGS (1)
  1. ENALAPRIL MALEATE [Suspect]
     Indication: HYPERTENSION
     Dosage: (0.75 MG BID ORAL), (1.25 MG BID ORAL), (DF ORAL)
     Route: 048

REACTIONS (2)
  - HEADACHE [None]
  - URINE OUTPUT DECREASED [None]
